APPROVED DRUG PRODUCT: PERINDOPRIL ERBUMINE
Active Ingredient: PERINDOPRIL ERBUMINE
Strength: 8MG
Dosage Form/Route: TABLET;ORAL
Application: A090072 | Product #003
Applicant: HIKMA PHARMACEUTICALS USA INC
Approved: Nov 10, 2009 | RLD: No | RS: No | Type: DISCN